FAERS Safety Report 23607902 (Version 2)
Quarter: 2024Q1

REPORT INFORMATION
  Report Type: Spontaneous
  Country: US (occurrence: US)
  Receive Date: 20240307
  Receipt Date: 20240311
  Transmission Date: 20240410
  Serious: No
  Sender: FDA-Public Use
  Company Number: US-PURDUE-USA-2024-0308216

PATIENT
  Age: 38 Year
  Sex: Female
  Weight: 65.77 kg

DRUGS (5)
  1. BUTRANS [Suspect]
     Active Substance: BUPRENORPHINE
     Indication: Back pain
     Dosage: 15MCG/HR, WEEKLY ( CONCOMITANTLY WITH 1 20MCG TDS PATCH AT LEAST 2+YEARS)
     Route: 062
  2. BUTRANS [Suspect]
     Active Substance: BUPRENORPHINE
     Indication: Pain in extremity
     Dosage: 20 MCG/HR, WEEKLY (CONCOMITANTLY WITH 1-15MCG/HR PATCH)
     Route: 062
     Dates: start: 2023
  3. BUTRANS [Suspect]
     Active Substance: BUPRENORPHINE
     Indication: Arthralgia
  4. MORPHINE SULFATE [Suspect]
     Active Substance: MORPHINE SULFATE
     Indication: Product used for unknown indication
     Dosage: UNK
     Route: 065
  5. TRAMADOL [Suspect]
     Active Substance: TRAMADOL\TRAMADOL HYDROCHLORIDE
     Indication: Product used for unknown indication
     Dosage: UNK
     Route: 065

REACTIONS (7)
  - Application site vesicles [Unknown]
  - Paranoia [Unknown]
  - Off label use [Unknown]
  - Application site rash [Unknown]
  - Rash [Unknown]
  - Pruritus [Unknown]
  - Product adhesion issue [Unknown]

NARRATIVE: CASE EVENT DATE: 20240101
